FAERS Safety Report 6839649-5 (Version None)
Quarter: 2010Q3

REPORT INFORMATION
  Report Type: 
  Country: None (occurrence: None)
  Receive Date: 20100714
  Receipt Date: 20100629
  Transmission Date: 20110219
  Serious: No
  Sender: FDA-Public Use
  Company Number: US-BAYER-201018846NA

PATIENT
  Age: 71 Year
  Sex: Male
  Weight: 73 kg

DRUGS (2)
  1. MAGNEVIST [Suspect]
     Indication: NUCLEAR MAGNETIC RESONANCE IMAGING
     Dosage: TOTAL DAILY DOSE: 30 ML
     Route: 042
     Dates: start: 20100405, end: 20100405
  2. MAGNEVIST [Suspect]
     Dosage: INJECTED MANUALLY INTO ANTECUBITAL
     Route: 042
     Dates: start: 20100628, end: 20100628

REACTIONS (1)
  - VOMITING [None]
